FAERS Safety Report 9648982 (Version 1)
Quarter: 2013Q4

REPORT INFORMATION
  Report Type: Spontaneous
  Country: GB (occurrence: GB)
  Receive Date: 20131028
  Receipt Date: 20131028
  Transmission Date: 20140711
  Serious: Yes (Other)
  Sender: FDA-Public Use
  Company Number: GB-WATSON-2013-19669

PATIENT
  Age: 24 Year
  Sex: Male
  Weight: 107 kg

DRUGS (2)
  1. RISPERIDONE (UNKNOWN) [Suspect]
     Indication: POST-TRAUMATIC STRESS DISORDER
     Dosage: 1 MG, TID
     Route: 030
     Dates: start: 20121010, end: 20130423
  2. RISPERDAL CONSTA [Suspect]
     Indication: POST-TRAUMATIC STRESS DISORDER
     Dosage: UNK
     Route: 030

REACTIONS (2)
  - Abnormal weight gain [Not Recovered/Not Resolved]
  - Skin striae [Unknown]
